FAERS Safety Report 6340302-5 (Version None)
Quarter: 2009Q3

REPORT INFORMATION
  Report Type: 
  Country: None (occurrence: None)
  Receive Date: 20090902
  Receipt Date: 20090817
  Transmission Date: 20100115
  Serious: Yes (Hospitalization)
  Sender: FDA-Public Use
  Company Number: 2009-0511

PATIENT
  Age: 63 Year
  Sex: Male

DRUGS (5)
  1. DYSPORT         500 UNITES SPEYWOOD   (BOTULINUM TOXIN TYPE A) [Suspect]
     Indication: ISCHAEMIC STROKE
     Dosage: 900 UNITS, 1 IN 4 WK, INTRAMUSCULAR (SINGLE CYCLE)
     Route: 030
     Dates: start: 20090309, end: 20090309
  2. DYSPORT         500 UNITES SPEYWOOD   (BOTULINUM TOXIN TYPE A) [Suspect]
     Indication: MUSCLE SPASTICITY
     Dosage: 900 UNITS, 1 IN 4 WK, INTRAMUSCULAR (SINGLE CYCLE)
     Route: 030
     Dates: start: 20090309, end: 20090309
  3. LERCAN 10        (LERCANIDIPINE HYDROCHLORIDE) [Concomitant]
  4. COAPROVEL  (KARVEA HCT) [Concomitant]
  5. BISOPROLOL FUMARATE [Concomitant]

REACTIONS (5)
  - ASTHENIA [None]
  - DYSPNOEA [None]
  - MUSCULAR WEAKNESS [None]
  - NEUROMUSCULAR TOXICITY [None]
  - PULMONARY FUNCTION TEST ABNORMAL [None]
